FAERS Safety Report 20883291 (Version 2)
Quarter: 2024Q1

REPORT INFORMATION
  Report Type: Spontaneous
  Country: US (occurrence: US)
  Receive Date: 20220527
  Receipt Date: 20240212
  Transmission Date: 20240410
  Serious: No
  Sender: FDA-Public Use
  Company Number: US-009507513-2205USA007902

PATIENT
  Age: 69 Year
  Sex: Male

DRUGS (1)
  1. PEMBROLIZUMAB [Suspect]
     Active Substance: PEMBROLIZUMAB
     Indication: Anaplastic thyroid cancer
     Dosage: UNK

REACTIONS (3)
  - Pruritus [Recovered/Resolved]
  - Lichen planus [Recovered/Resolved]
  - Off label use [Unknown]
